FAERS Safety Report 10498897 (Version 4)
Quarter: 2015Q1

REPORT INFORMATION
  Report Type: Spontaneous
  Country: US (occurrence: US)
  Receive Date: 20141006
  Receipt Date: 20150316
  Transmission Date: 20150720
  Serious: Yes (Other)
  Sender: FDA-Public Use
  Company Number: US-PFIZER INC-2014272458

PATIENT
  Age: 16 Year
  Sex: Female
  Weight: 51 kg

DRUGS (1)
  1. MEDROXYPROGESTERONE ACETATE. [Suspect]
     Active Substance: MEDROXYPROGESTERONE ACETATE
     Indication: CONTRACEPTION
     Dosage: 150 MG, 1X/DAY (1 ML (150MG/ML))
     Route: 030
     Dates: start: 20140321

REACTIONS (6)
  - Inflammation [Unknown]
  - Scar [Not Recovered/Not Resolved]
  - Hypoaesthesia [Unknown]
  - Pain [Recovering/Resolving]
  - Contusion [Unknown]
  - Paraesthesia [Unknown]

NARRATIVE: CASE EVENT DATE: 201403
